FAERS Safety Report 19206020 (Version 2)
Quarter: 2021Q2

REPORT INFORMATION
  Report Type: Spontaneous
  Country: US (occurrence: US)
  Receive Date: 20210503
  Receipt Date: 20210521
  Transmission Date: 20210717
  Serious: Yes (Other)
  Sender: FDA-Public Use
  Company Number: US-ACCORD-223877

PATIENT
  Age: 54 Year
  Sex: Female

DRUGS (3)
  1. OXALIPLATIN. [Suspect]
     Active Substance: OXALIPLATIN
     Indication: COLORECTAL CANCER STAGE III
     Dosage: EVERY 2 WEEKS (COMPLETED TWO CYCLES)
     Dates: start: 2016
  2. FLUOROURACIL. [Suspect]
     Active Substance: FLUOROURACIL
     Indication: COLORECTAL CANCER STAGE III
     Dosage: BOLUS OF 5?FU (2400 MG/M2) (COMPLETED TWO CYCLES)
     Route: 041
     Dates: start: 2016
  3. FOLINIC ACID [Suspect]
     Active Substance: LEUCOVORIN
     Indication: COLORECTAL CANCER STAGE III
     Dosage: COMPLETED TWO CYCLES
     Dates: start: 2016

REACTIONS (2)
  - Cytopenia [Unknown]
  - Mucosal inflammation [Unknown]
